FAERS Safety Report 9660322 (Version 2)
Quarter: 2013Q4

REPORT INFORMATION
  Report Type: Spontaneous
  Country: US (occurrence: US)
  Receive Date: 20131031
  Receipt Date: 20131031
  Transmission Date: 20140711
  Serious: Yes (Other)
  Sender: FDA-Public Use
  Company Number: US-NAPPMUNDI-USA-2011-0068078

PATIENT
  Age: 28 Year
  Sex: 0
  Weight: 86.17 kg

DRUGS (3)
  1. OXYCONTIN TABLETS [Suspect]
     Indication: BACK PAIN
     Dosage: UNK UNK, SEE TEXT
     Dates: end: 20100820
  2. SOMA [Concomitant]
  3. IBUPROFEN [Concomitant]

REACTIONS (3)
  - Drug dependence [Unknown]
  - Drug withdrawal syndrome [Recovered/Resolved]
  - Euphoric mood [Recovered/Resolved]
